FAERS Safety Report 5599300-1 (Version None)
Quarter: 2008Q1

REPORT INFORMATION
  Report Type: 
  Country: None (occurrence: None)
  Receive Date: 20080117
  Receipt Date: 20080103
  Transmission Date: 20080703
  Serious: Yes (Disabling, Other)
  Sender: FDA-Public Use
  Company Number: S07-FRA-06257-01

PATIENT
  Age: 82 Year
  Sex: Male
  Weight: 79 kg

DRUGS (6)
  1. MEMANTINE HCL [Suspect]
     Indication: DEMENTIA ALZHEIMER'S TYPE
     Dosage: 10 MG QD PO
     Route: 048
     Dates: start: 20071112, end: 20071119
  2. MEMANTINE HCL [Suspect]
     Indication: DEMENTIA ALZHEIMER'S TYPE
     Dosage: 10 MG BID PO
     Route: 048
     Dates: start: 20071120, end: 20071205
  3. PAROXETINE [Concomitant]
  4. EQUANIL [Concomitant]
  5. ZOPICLONE [Concomitant]
  6. TAMSULOSIN HCL [Concomitant]

REACTIONS (7)
  - ABDOMINAL PAIN [None]
  - CONDITION AGGRAVATED [None]
  - DEPRESSION [None]
  - DIZZINESS [None]
  - GAIT DISTURBANCE [None]
  - MALAISE [None]
  - TRANSAMINASES INCREASED [None]
